FAERS Safety Report 4812367-0 (Version None)
Quarter: 2005Q4

REPORT INFORMATION
  Report Type: 
  Country: None (occurrence: None)
  Receive Date: 20051028
  Receipt Date: 20050118
  Transmission Date: 20060501
  Serious: No
  Sender: FDA-Public Use
  Company Number: US-GLAXOSMITHKLINE-A0541123A

PATIENT
  Age: 85 Year
  Sex: Female
  Weight: 54.5 kg

DRUGS (1)
  1. ADVAIR DISKUS 100/50 [Suspect]
     Indication: DRUG USE FOR UNKNOWN INDICATION
     Route: 055

REACTIONS (5)
  - DYSPNOEA [None]
  - FATIGUE [None]
  - FEELING JITTERY [None]
  - MALAISE [None]
  - VISION BLURRED [None]
